FAERS Safety Report 14940252 (Version 1)
Quarter: 2018Q2

REPORT INFORMATION
  Report Type: Spontaneous
  Country: CH (occurrence: CH)
  Receive Date: 20180525
  Receipt Date: 20180525
  Transmission Date: 20180711
  Serious: Yes (Other)
  Sender: FDA-Public Use
  Company Number: CH-SA-2018SA129333

PATIENT
  Sex: Female

DRUGS (2)
  1. FINGOLIMOD. [Concomitant]
     Active Substance: FINGOLIMOD
     Dosage: UNK UNK,UNK
     Route: 065
  2. AUBAGIO [Suspect]
     Active Substance: TERIFLUNOMIDE
     Dosage: UNK UNK,UNK
     Route: 048
     Dates: start: 201802

REACTIONS (1)
  - Multiple sclerosis [Unknown]

NARRATIVE: CASE EVENT DATE: 2018
